FAERS Safety Report 18696147 (Version 2)
Quarter: 2021Q4

REPORT INFORMATION
  Report Type: Report from Study
  Country: IN (occurrence: IN)
  Receive Date: 20210104
  Receipt Date: 20211124
  Transmission Date: 20220303
  Serious: Yes (Other)
  Sender: FDA-Public Use
  Company Number: IN-NOVARTISPH-NVSC2020IN345430

PATIENT
  Age: 33 Year
  Sex: Male

DRUGS (2)
  1. TASIGNA [Suspect]
     Active Substance: NILOTINIB
     Indication: Chronic myeloid leukaemia
     Dosage: 300 MG, BID
     Route: 048
     Dates: start: 20201216, end: 20201225
  2. TASIGNA [Suspect]
     Active Substance: NILOTINIB
     Dosage: 300 MG, BID
     Route: 065
     Dates: start: 20201225, end: 20211008

REACTIONS (2)
  - Electrocardiogram QT prolonged [Unknown]
  - Cytogenetic analysis abnormal [Not Recovered/Not Resolved]

NARRATIVE: CASE EVENT DATE: 20201225
